FAERS Safety Report 11534940 (Version 4)
Quarter: 2015Q4

REPORT INFORMATION
  Report Type: Spontaneous
  Country: JP (occurrence: JP)
  Receive Date: 20150922
  Receipt Date: 20151014
  Transmission Date: 20160304
  Serious: No
  Sender: FDA-Public Use
  Company Number: JP-JNJFOC-20150915998

PATIENT
  Age: 36 Year
  Sex: Male

DRUGS (4)
  1. DUROTEP MT [Suspect]
     Active Substance: FENTANYL
     Indication: PAIN
     Route: 062
  2. VEGETAMIN-B [Suspect]
     Active Substance: CHLORPROMAZINE HYDROCHLORIDE\PHENOBARBITAL\PROMETHAZINE
     Indication: DEPRESSION
     Route: 048
  3. LYRICA [Concomitant]
     Active Substance: PREGABALIN
     Route: 048
  4. GABAPEN [Concomitant]
     Active Substance: GABAPENTIN
     Route: 065

REACTIONS (5)
  - Visual acuity reduced [Recovered/Resolved]
  - Eyelid ptosis [Recovered/Resolved]
  - Drug prescribing error [Unknown]
  - Inadequate analgesia [Unknown]
  - Diplopia [Recovered/Resolved]
